FAERS Safety Report 7052521-3 (Version None)
Quarter: 2010Q4

REPORT INFORMATION
  Report Type: 
  Country: None (occurrence: None)
  Receive Date: 20101019
  Receipt Date: 20101006
  Transmission Date: 20110411
  Serious: Yes (Other)
  Sender: FDA-Public Use
  Company Number: US-ELI_LILLY_AND_COMPANY-US201010002170

PATIENT
  Sex: Male

DRUGS (4)
  1. STRATTERA [Suspect]
     Indication: ATTENTION DEFICIT/HYPERACTIVITY DISORDER
     Dosage: 10 MG, DAILY (1/D)
  2. STRATTERA [Suspect]
     Dosage: 18 MG, DAILY (1/D)
  3. WELLBUTRIN [Concomitant]
     Dosage: 1 D/F, UNK
  4. ZOLOFT [Concomitant]
     Dosage: 1 D/F, UNK

REACTIONS (5)
  - BLINDNESS [None]
  - NAUSEA [None]
  - VISUAL IMPAIRMENT [None]
  - VITREOUS FLOATERS [None]
  - VOMITING [None]
